FAERS Safety Report 9320902 (Version 2)
Quarter: 2013Q2

REPORT INFORMATION
  Report Type: Report from Study
  Country: BD (occurrence: BD)
  Receive Date: 20130531
  Receipt Date: 20130603
  Transmission Date: 20140414
  Serious: Yes (Death)
  Sender: FDA-Public Use
  Company Number: PHHY2013BD054750

PATIENT
  Age: 78 Year
  Sex: Male

DRUGS (1)
  1. EXELON PATCH [Suspect]
     Indication: DEMENTIA
     Dosage: 4.6 MG (5 CM), DAILY
     Route: 062
     Dates: start: 201208

REACTIONS (2)
  - Myocardial infarction [Fatal]
  - Hyperhidrosis [Fatal]
